FAERS Safety Report 10310170 (Version 1)
Quarter: 2014Q3

REPORT INFORMATION
  Report Type: Spontaneous
  Country: US (occurrence: None)
  Receive Date: 20140715
  Receipt Date: 20140715
  Transmission Date: 20150326
  Serious: Yes (Disabling)
  Sender: FDA-Public Use
  Company Number: None

PATIENT
  Age: 55 Year
  Sex: Female
  Weight: 68.04 kg

DRUGS (7)
  1. NIFEDIAC CC [Concomitant]
     Active Substance: NIFEDIPINE
  2. IBUPROFEN. [Concomitant]
     Active Substance: IBUPROFEN
  3. MULTI-VITAMIN WITH CALCIUM [Concomitant]
  4. CYMBALTA [Suspect]
     Active Substance: DULOXETINE HYDROCHLORIDE
     Indication: CONNECTIVE TISSUE DISORDER
     Dosage: BY MOUTH
     Dates: start: 20120327, end: 20140418
  5. LEVOTHROID [Concomitant]
     Active Substance: LEVOTHYROXINE SODIUM
  6. LISINOPRIL. [Concomitant]
     Active Substance: LISINOPRIL
  7. RESTASIS [Concomitant]
     Active Substance: CYCLOSPORINE

REACTIONS (35)
  - Chills [None]
  - Tachycardia [None]
  - Pain in jaw [None]
  - Tunnel vision [None]
  - Diarrhoea [None]
  - Dehydration [None]
  - Asthenia [None]
  - Toothache [None]
  - Polyuria [None]
  - Bradyphrenia [None]
  - Photosensitivity reaction [None]
  - Hyperhidrosis [None]
  - Dizziness exertional [None]
  - Drug withdrawal syndrome [None]
  - Thirst [None]
  - Palpitations [None]
  - Hypoaesthesia [None]
  - Peripheral coldness [None]
  - Tremor [None]
  - Hot flush [None]
  - Pruritus generalised [None]
  - Fatigue [None]
  - Amnesia [None]
  - Hyperacusis [None]
  - Parosmia [None]
  - Emotional disorder [None]
  - Salt craving [None]
  - Dry skin [None]
  - Mucosal dryness [None]
  - Cough [None]
  - Nasal congestion [None]
  - Laryngitis [None]
  - Dyspnoea [None]
  - Muscle spasms [None]
  - Dysgeusia [None]

NARRATIVE: CASE EVENT DATE: 20140418
